FAERS Safety Report 12811784 (Version 1)
Quarter: 2016Q4

REPORT INFORMATION
  Report Type: Spontaneous
  Country: SG (occurrence: SG)
  Receive Date: 20161005
  Receipt Date: 20161005
  Transmission Date: 20170207
  Serious: Yes (Hospitalization)
  Sender: FDA-Public Use
  Company Number: SG-NORTHSTAR HEALTHCARE HOLDINGS-SG-2016NSR001852

PATIENT
  Age: 35 Year
  Sex: Male

DRUGS (3)
  1. TRAMADOL HYDROCHLORIDE. [Suspect]
     Active Substance: TRAMADOL HYDROCHLORIDE
     Dosage: 50 MG, UNK, [2 DOSES]
     Route: 048
  2. TRAMADOL HYDROCHLORIDE. [Suspect]
     Active Substance: TRAMADOL HYDROCHLORIDE
     Indication: ANALGESIC THERAPY
     Dosage: UNK
     Route: 042
  3. TRAMADOL HYDROCHLORIDE. [Suspect]
     Active Substance: TRAMADOL HYDROCHLORIDE
     Dosage: UNK
     Route: 048

REACTIONS (10)
  - Oedema peripheral [Recovered/Resolved]
  - Fluid retention [Recovered/Resolved]
  - Peripheral swelling [Recovered/Resolved]
  - Ascites [Recovered/Resolved]
  - Scrotal swelling [Recovered/Resolved]
  - Abdominal distension [Recovered/Resolved]
  - Scrotal oedema [Recovered/Resolved]
  - Penile oedema [Recovered/Resolved]
  - Hydrocele [Recovered/Resolved]
  - Pleural effusion [Recovered/Resolved]
